FAERS Safety Report 12352376 (Version 4)
Quarter: 2017Q4

REPORT INFORMATION
  Report Type: Spontaneous
  Country: GB (occurrence: GB)
  Receive Date: 20160510
  Receipt Date: 20171030
  Transmission Date: 20180320
  Serious: Yes (Hospitalization, Other)
  Sender: FDA-Public Use
  Company Number: GB-JNJFOC-20160507309

PATIENT
  Sex: Female

DRUGS (2)
  1. FENTANYL. [Concomitant]
     Active Substance: FENTANYL
     Indication: ABDOMINAL PAIN
     Route: 048
  2. DUROGESIC DTRANS [Suspect]
     Active Substance: FENTANYL
     Indication: ABDOMINAL PAIN
     Dosage: 100 UG/HR AND 25 UG/HR
     Route: 062

REACTIONS (5)
  - Hospitalisation [Recovered/Resolved]
  - Product quality issue [Unknown]
  - Application site burn [Not Recovered/Not Resolved]
  - Inappropriate schedule of drug administration [Unknown]
  - Application site vesicles [Unknown]

NARRATIVE: CASE EVENT DATE: 20160515
